FAERS Safety Report 19812536 (Version 1)
Quarter: 2021Q3

REPORT INFORMATION
  Report Type: Spontaneous
  Country: CA (occurrence: CA)
  Receive Date: 20210910
  Receipt Date: 20210910
  Transmission Date: 20211014
  Serious: Yes (Hospitalization, Other)
  Sender: FDA-Public Use
  Company Number: CA-CELLTRION INC.-2021CA012302

PATIENT

DRUGS (3)
  1. INFLECTRA [Suspect]
     Active Substance: INFLIXIMAB-DYYB
     Dosage: 400 MG, Q 0, 2, 6 WEEK DOSE, THEN EVERY 6 WEEKS
     Route: 042
     Dates: start: 20210831
  2. INFLECTRA [Suspect]
     Active Substance: INFLIXIMAB-DYYB
     Indication: NEUROSARCOIDOSIS
     Dosage: 400 MG, Q 0, 2, 6 WEEK DOSE, THEN EVERY 6 WEEKS
     Route: 042
     Dates: start: 20210713
  3. INFLECTRA [Suspect]
     Active Substance: INFLIXIMAB-DYYB
     Dosage: 400 MG, Q 0, 2, 6 WEEK DOSE, THEN EVERY 6 WEEKS
     Route: 042
     Dates: start: 20210803

REACTIONS (5)
  - Loss of consciousness [Unknown]
  - Syncope [Unknown]
  - Seizure [Unknown]
  - Weight increased [Unknown]
  - Off label use [Unknown]

NARRATIVE: CASE EVENT DATE: 20210713
